FAERS Safety Report 8902675 (Version 2)
Quarter: 2012Q4

REPORT INFORMATION
  Report Type: Report from Study
  Country: BR (occurrence: BR)
  Receive Date: 20121112
  Receipt Date: 20121130
  Transmission Date: 20130627
  Serious: No
  Sender: FDA-Public Use
  Company Number: BR-NOVOPROD-363336

PATIENT
  Age: 66 Year
  Sex: Female
  Weight: 55.2 kg

DRUGS (1)
  1. LIRAGLUTIDE FLEXPEN [Suspect]
     Indication: TYPE 2 DIABETES MELLITUS
     Dosage: 0.6 mg, qd
     Route: 058
     Dates: start: 20111019, end: 20121020

REACTIONS (1)
  - Dermatitis allergic [Not Recovered/Not Resolved]
